FAERS Safety Report 5895150-7 (Version None)
Quarter: 2008Q3

REPORT INFORMATION
  Report Type: 
  Country: None (occurrence: None)
  Receive Date: 20080924
  Receipt Date: 20080911
  Transmission Date: 20090109
  Serious: Yes (Hospitalization)
  Sender: FDA-Public Use
  Company Number: GB-PFIZER INC-2008077265

PATIENT
  Age: 27 Year
  Sex: Male

DRUGS (7)
  1. PHENYTOIN [Suspect]
     Indication: POST-TRAUMATIC EPILEPSY
     Dosage: DAILY DOSE:300MG
     Route: 048
     Dates: start: 20080802, end: 20080831
  2. BACTROBAN [Concomitant]
  3. AMOXICILLIN + CLAVULANATE POTASSIUM [Concomitant]
  4. ENOXAPARIN SODIUM [Concomitant]
  5. MOVICOL [Concomitant]
  6. ACETAMINOPHEN [Concomitant]
  7. RANITIDINE [Concomitant]

REACTIONS (4)
  - ALANINE AMINOTRANSFERASE INCREASED [None]
  - DRUG RASH WITH EOSINOPHILIA AND SYSTEMIC SYMPTOMS [None]
  - LIVER FUNCTION TEST ABNORMAL [None]
  - LYMPHADENOPATHY [None]
